FAERS Safety Report 15124955 (Version 1)
Quarter: 2018Q3

REPORT INFORMATION
  Report Type: Report from Study
  Country: IT (occurrence: IT)
  Receive Date: 20180710
  Receipt Date: 20180710
  Transmission Date: 20181010
  Serious: Yes (Hospitalization)
  Sender: FDA-Public Use
  Company Number: IT-TEVA-2018-IT-922851

PATIENT
  Age: 35 Year
  Sex: Female
  Weight: 74 kg

DRUGS (1)
  1. RISPERDAL [Suspect]
     Active Substance: RISPERIDONE
     Dosage: 12 MILLIGRAM DAILY;
     Route: 048
     Dates: start: 20180124, end: 20180124

REACTIONS (3)
  - Hypotension [Recovering/Resolving]
  - Accidental overdose [Recovering/Resolving]
  - Medication error [Recovering/Resolving]

NARRATIVE: CASE EVENT DATE: 20180124
